FAERS Safety Report 6998440-X (Version None)
Quarter: 2010Q3

REPORT INFORMATION
  Report Type: 
  Country: None (occurrence: None)
  Receive Date: 20100920
  Receipt Date: 20100908
  Transmission Date: 20110219
  Serious: Yes (Life-Threatening, Hospitalization)
  Sender: FDA-Public Use
  Company Number: FR-JNJFOC-20100902913

PATIENT
  Age: 51 Year
  Sex: Male

DRUGS (3)
  1. REMICADE [Suspect]
     Indication: CROHN'S DISEASE
     Route: 042
  2. PENTASA [Suspect]
     Indication: CROHN'S DISEASE
     Dosage: ^2 DF TWICE DAILY DOSAGE INCREASED^
     Route: 048
  3. IMUREL [Suspect]
     Indication: CROHN'S DISEASE
     Dosage: ^1 DF 3 TIMES DAILY^
     Route: 048

REACTIONS (1)
  - HODGKIN'S DISEASE [None]
